FAERS Safety Report 18844102 (Version 1)
Quarter: 2021Q1

REPORT INFORMATION
  Report Type: Spontaneous
  Country: US (occurrence: US)
  Receive Date: 20210204
  Receipt Date: 20210204
  Transmission Date: 20210419
  Serious: Yes (Other)
  Sender: FDA-Public Use
  Company Number: US-GLAXOSMITHKLINE-US2021GSK027924

PATIENT
  Sex: Male

DRUGS (5)
  1. RANITIDINE. [Suspect]
     Active Substance: RANITIDINE
     Indication: ABDOMINAL PAIN LOWER
     Dosage: 150 MG, QD
     Route: 065
     Dates: start: 200501, end: 201706
  2. RANITIDINE. [Suspect]
     Active Substance: RANITIDINE
     Indication: ABDOMINAL PAIN LOWER
     Dosage: 150 MG, QD
     Route: 065
     Dates: start: 200501, end: 201706
  3. ZANTAC [Suspect]
     Active Substance: RANITIDINE HYDROCHLORIDE
     Indication: ABDOMINAL PAIN LOWER
     Dosage: 75 MG, QD
     Route: 065
     Dates: start: 200501, end: 201706
  4. ZANTAC [Suspect]
     Active Substance: RANITIDINE HYDROCHLORIDE
     Indication: ABDOMINAL PAIN LOWER
     Dosage: 75 MG, QD
     Route: 065
     Dates: start: 200501, end: 201706
  5. RANITIDINE CAPSULE [Suspect]
     Active Substance: RANITIDINE
     Indication: ABDOMINAL PAIN LOWER
     Dosage: 75 MG, QD
     Route: 065
     Dates: start: 200501, end: 201706

REACTIONS (1)
  - Colorectal cancer [Unknown]
